FAERS Safety Report 16409364 (Version 1)
Quarter: 2019Q2

REPORT INFORMATION
  Report Type: Report from Study
  Country: IE (occurrence: IE)
  Receive Date: 20190610
  Receipt Date: 20190610
  Transmission Date: 20190711
  Serious: Yes (Death, Hospitalization)
  Sender: FDA-Public Use
  Company Number: IE-JNJFOC-20190232377

PATIENT
  Age: 85 Year
  Sex: Male

DRUGS (11)
  1. MACROGOL 3350 [Concomitant]
     Active Substance: POLYETHYLENE GLYCOL 3350
     Route: 050
  2. APIXABAN [Concomitant]
     Active Substance: APIXABAN
     Indication: ATRIAL FIBRILLATION
     Route: 050
  3. BETAHISTINE HYDROCHLORIDE [Concomitant]
     Active Substance: BETAHISTINE HYDROCHLORIDE
     Route: 050
  4. RANEXA [Concomitant]
     Active Substance: RANOLAZINE
     Route: 050
  5. BISOPROLOL [Concomitant]
     Active Substance: BISOPROLOL
     Route: 050
  6. IBRUTINIB [Suspect]
     Active Substance: IBRUTINIB
     Indication: MANTLE CELL LYMPHOMA
     Route: 048
     Dates: start: 20170912, end: 2018
  7. FUROSEMIDE. [Concomitant]
     Active Substance: FUROSEMIDE
     Route: 050
  8. PRAVASTATIN. [Concomitant]
     Active Substance: PRAVASTATIN
     Route: 050
  9. VALTREX [Concomitant]
     Active Substance: VALACYCLOVIR HYDROCHLORIDE
     Route: 050
  10. LACTULOSE. [Concomitant]
     Active Substance: LACTULOSE
     Route: 050
  11. IMDUR [Concomitant]
     Active Substance: ISOSORBIDE MONONITRATE
     Route: 050

REACTIONS (4)
  - Pneumonia [Not Recovered/Not Resolved]
  - Incorrect dose administered [Unknown]
  - Death [Fatal]
  - Off label use [Unknown]

NARRATIVE: CASE EVENT DATE: 20170912
